FAERS Safety Report 8555343-7 (Version None)
Quarter: 2012Q3

REPORT INFORMATION
  Report Type: 
  Country: None (occurrence: None)
  Receive Date: 20120731
  Receipt Date: 20110824
  Transmission Date: 20120928
  Serious: No
  Sender: FDA-Public Use
  Company Number: US-ASTRAZENECA-2011SE51143

PATIENT
  Age: 55 Year
  Sex: Female

DRUGS (14)
  1. SYNTHROID [Concomitant]
  2. PROZAC [Concomitant]
  3. GLUCOVANCE [Concomitant]
  4. AMBIEN CR [Concomitant]
  5. SEROQUEL XR [Suspect]
     Dosage: 3 TABLETS AT NIGHT
     Route: 048
  6. CRESTOR [Suspect]
     Route: 048
  7. ALPRAZOLAM [Concomitant]
  8. STEROIDS [Concomitant]
  9. PREVACID [Concomitant]
  10. AZYCLOVIR [Concomitant]
  11. SEROQUEL XR [Suspect]
     Dosage: LOWER DOSE AS BEFORE
     Route: 048
  12. ADVAIR [Concomitant]
  13. ZETIA [Concomitant]
  14. ZANTAC [Concomitant]

REACTIONS (5)
  - DIABETES MELLITUS [None]
  - RESTLESS LEGS SYNDROME [None]
  - GENERALISED ANXIETY DISORDER [None]
  - MANIA [None]
  - BRONCHITIS [None]
